FAERS Safety Report 6758083-X (Version None)
Quarter: 2010Q2

REPORT INFORMATION
  Report Type: 
  Country: None (occurrence: None)
  Receive Date: 20100607
  Receipt Date: 20100524
  Transmission Date: 20101027
  Serious: Yes (Other)
  Sender: FDA-Public Use
  Company Number: MX-ELI_LILLY_AND_COMPANY-MX201006000154

PATIENT
  Age: 68 Year
  Sex: Female
  Weight: 48 kg

DRUGS (9)
  1. FORTEO [Suspect]
     Indication: BONE DISORDER
     Dosage: 20 UG, DAILY (1/D)
     Route: 058
     Dates: start: 20100410
  2. FOLIC ACID [Concomitant]
     Dosage: UNK, DAILY (1/D)
     Route: 065
     Dates: start: 20080101
  3. BENERVA [Concomitant]
     Dosage: 300 MG, DAILY (1/D)
     Route: 065
     Dates: start: 20100101
  4. VITAMIN E /001105/ [Concomitant]
     Dosage: UNK, DAILY (1/D)
     Route: 065
     Dates: start: 20070101
  5. OMEPRAZOLE [Concomitant]
     Dosage: 20 MG, DAILY (1/D)
     Route: 065
     Dates: start: 20060101
  6. CORTISONE [Concomitant]
     Dosage: UNK, OTHER
     Route: 065
     Dates: start: 20000101
  7. CITRACAL + D [Concomitant]
     Dosage: UNK, DAILY (1/D)
     Route: 065
  8. CLONAZEPAM [Concomitant]
     Dosage: 2 MG, EACH EVENING
     Route: 065
     Dates: start: 20100401
  9. CELECOXIB [Concomitant]
     Dosage: 200 MG, DAILY (1/D)
     Route: 065

REACTIONS (5)
  - ABASIA [None]
  - ARTHRALGIA [None]
  - DEVICE BREAKAGE [None]
  - GROIN PAIN [None]
  - PAIN IN EXTREMITY [None]
